FAERS Safety Report 23370971 (Version 7)
Quarter: 2024Q2

REPORT INFORMATION
  Report Type: Spontaneous
  Country: AU (occurrence: AU)
  Receive Date: 20240105
  Receipt Date: 20240423
  Transmission Date: 20240716
  Serious: Yes (Other)
  Sender: FDA-Public Use
  Company Number: AU-LUNDBECK-DKLU3072202

PATIENT
  Age: 64 Year
  Sex: Female

DRUGS (1)
  1. ABILIFY MAINTENA [Suspect]
     Active Substance: ARIPIPRAZOLE
     Indication: Product used for unknown indication
     Dosage: UNK
     Route: 030

REACTIONS (11)
  - Generalised tonic-clonic seizure [Unknown]
  - Colorectal cancer [Unknown]
  - Partial seizures [Unknown]
  - Haematochezia [Not Recovered/Not Resolved]
  - General physical health deterioration [Unknown]
  - Hypotonia [Unknown]
  - Pain [Unknown]
  - Abdominal distension [Unknown]
  - Weight increased [Unknown]
  - Haemorrhoids [Recovered/Resolved]
  - Asthenia [Unknown]
